FAERS Safety Report 17112400 (Version 3)
Quarter: 2020Q1

REPORT INFORMATION
  Report Type: Report from Study
  Country: DE (occurrence: DE)
  Receive Date: 20191204
  Receipt Date: 20200220
  Transmission Date: 20200409
  Serious: Yes (Death, Hospitalization)
  Sender: FDA-Public Use
  Company Number: DE-MYLANLABS-2019M1118272

PATIENT
  Age: 38 Year
  Sex: Female
  Weight: 100 kg

DRUGS (4)
  1. TRASTUZUMAB. [Suspect]
     Active Substance: TRASTUZUMAB
     Indication: BREAST CANCER
     Dosage: MOST RECENT DOSE OF TRASTUZUMAB 642 MG PRIOR TO SAE: 13/JUN/2019)
     Route: 042
     Dates: start: 20181203, end: 20190613
  2. RED BLOOD CELLS [Concomitant]
     Active Substance: HUMAN RED BLOOD CELL
     Dosage: 550 MILLILITER, PRN
     Route: 042
     Dates: start: 20190524, end: 20190524
  3. DOCETAXEL. [Suspect]
     Active Substance: DOCETAXEL
     Indication: BREAST CANCER
     Dosage: MOST RECENT DOSE OF DOCETAXEL 150 MG PRIOR TO SAE: 13/JUN/2019)
     Route: 042
     Dates: start: 20181203, end: 20190502
  4. DOCETAXEL. [Suspect]
     Active Substance: DOCETAXEL
     Dosage: RECENT DOSE OF DOCETAXEL PRIOR TO SAE
     Route: 042
     Dates: start: 20190613

REACTIONS (1)
  - Asthma [Fatal]

NARRATIVE: CASE EVENT DATE: 20190629
